FAERS Safety Report 19759104 (Version 3)
Quarter: 2021Q4

REPORT INFORMATION
  Report Type: Spontaneous
  Country: US (occurrence: US)
  Receive Date: 20210827
  Receipt Date: 20211007
  Transmission Date: 20220303
  Serious: Yes (Other)
  Sender: FDA-Public Use
  Company Number: US-PFIZER INC-202101058710

PATIENT
  Age: 80 Year
  Sex: Male
  Weight: 62.14 kg

DRUGS (1)
  1. CHANTIX [Suspect]
     Active Substance: VARENICLINE TARTRATE
     Indication: Smoking cessation therapy
     Dosage: 2 DF, DAILY (ONE IN THE MORNING AND ONE AT NIGHT )
     Route: 048

REACTIONS (4)
  - Squamous cell carcinoma of lung [Unknown]
  - Nausea [Unknown]
  - Vomiting [Recovered/Resolved]
  - Malaise [Unknown]

NARRATIVE: CASE EVENT DATE: 20210501
